FAERS Safety Report 9023599 (Version 1)
Quarter: 2013Q1

REPORT INFORMATION
  Report Type: Other
  Country: US (occurrence: US)
  Receive Date: 20130121
  Receipt Date: 20130121
  Transmission Date: 20140127
  Serious: No
  Sender: FDA-Public Use
  Company Number: US-UPSHER-SMITH LABORATORIES, INC.-12001246

PATIENT
  Sex: Female

DRUGS (8)
  1. AMANTADINE HYDROCHLORIDE [Suspect]
     Indication: FATIGUE
     Dosage: 100 MG, QD
     Route: 048
     Dates: start: 201202
  2. OMEPRAZOLE [Concomitant]
     Dosage: UNK
  3. HYDROCHLOROTHIAZIDE [Concomitant]
     Dosage: UNK
  4. LISINOPRIL [Concomitant]
     Dosage: UNK
  5. SINGULAIR [Concomitant]
     Dosage: UNK
  6. VYTORIN [Concomitant]
     Dosage: UNK
  7. VITAMIN D3 [Concomitant]
     Dosage: UNK
  8. ALLEGRA [Concomitant]
     Dosage: UNK

REACTIONS (1)
  - Drug ineffective for unapproved indication [Not Recovered/Not Resolved]
